FAERS Safety Report 23210054 (Version 1)
Quarter: 2023Q4

REPORT INFORMATION
  Report Type: Spontaneous
  Country: US (occurrence: US)
  Receive Date: 20231121
  Receipt Date: 20231121
  Transmission Date: 20240109
  Serious: Yes (Hospitalization, Other)
  Sender: FDA-Public Use
  Company Number: US-drreddys-LIT/USA/23/0183518

PATIENT
  Age: 44 Year
  Sex: Male

DRUGS (2)
  1. CHLORPROMAZINE [Suspect]
     Active Substance: CHLORPROMAZINE
     Indication: Product used for unknown indication
     Dosage: 100MG FOUR TIMES A DAY
     Route: 048
  2. CHLORPROMAZINE [Suspect]
     Active Substance: CHLORPROMAZINE
     Dosage: 50MG INTRAMUSCULAR INJECTION EVERY 6 HOURS.
     Route: 030

REACTIONS (4)
  - Rhabdomyolysis [Unknown]
  - Small intestinal obstruction [Unknown]
  - Renal failure [Unknown]
  - Respiratory failure [Unknown]
